FAERS Safety Report 13969230 (Version 3)
Quarter: 2017Q4

REPORT INFORMATION
  Report Type: Spontaneous
  Country: JP (occurrence: JP)
  Receive Date: 20170914
  Receipt Date: 20171208
  Transmission Date: 20180321
  Serious: Yes (Hospitalization, Other)
  Sender: FDA-Public Use
  Company Number: JP-TAKEDA-2017TUS019019

PATIENT
  Age: 51 Year
  Sex: Male
  Weight: 75 kg

DRUGS (5)
  1. APIDRA [Concomitant]
     Active Substance: INSULIN GLULISINE
     Indication: TYPE 2 DIABETES MELLITUS
     Dosage: 8 IU, BID
     Route: 058
  2. HALCION [Concomitant]
     Active Substance: TRIAZOLAM
     Dosage: 0.25 MG, UNK
     Route: 048
     Dates: end: 20170904
  3. MOSAPRIDE CITRATE [Concomitant]
     Active Substance: MOSAPRIDE CITRATE
     Dosage: 5 MG, UNK
     Route: 048
     Dates: end: 20170904
  4. FEBURIC [Suspect]
     Active Substance: FEBUXOSTAT
     Indication: HYPERURICAEMIA
     Dosage: 10 MG, TID
     Route: 048
     Dates: start: 20170901, end: 20170904
  5. NOVORAPID [Concomitant]
     Active Substance: INSULIN ASPART
     Indication: TYPE 2 DIABETES MELLITUS
     Dosage: 16 IU, UNK
     Route: 058

REACTIONS (2)
  - Blood creatine phosphokinase increased [Recovering/Resolving]
  - Blood creatinine increased [Recovering/Resolving]

NARRATIVE: CASE EVENT DATE: 20170904
